FAERS Safety Report 6390706-X (Version None)
Quarter: 2009Q4

REPORT INFORMATION
  Report Type: 
  Country: None (occurrence: None)
  Receive Date: 20091006
  Receipt Date: 20090929
  Transmission Date: 20100525
  Serious: Yes (Life-Threatening)
  Sender: FDA-Public Use
  Company Number: GB-TEVA-211010ISR

PATIENT
  Age: 17 Year
  Sex: Male

DRUGS (4)
  1. HALOPERIDOL [Suspect]
     Indication: PSYCHOTIC DISORDER
     Route: 048
     Dates: start: 20090919
  2. HALOPERIDOL [Suspect]
     Indication: AGITATION
  3. ZOPICLONE [Suspect]
     Indication: INSOMNIA
     Dates: start: 20090919
  4. ARIPIPRAZOLE [Suspect]
     Indication: PSYCHOTIC DISORDER
     Route: 048
     Dates: start: 20090918

REACTIONS (1)
  - ANAPHYLACTIC REACTION [None]
